FAERS Safety Report 6306695-X (Version None)
Quarter: 2009Q3

REPORT INFORMATION
  Report Type: 
  Country: None (occurrence: None)
  Receive Date: 20090812
  Receipt Date: 20090807
  Transmission Date: 20100115
  Serious: Yes (Hospitalization)
  Sender: FDA-Public Use
  Company Number: US-TEVA-200179USA

PATIENT
  Age: 71 Year
  Sex: Male

DRUGS (7)
  1. PAROXETINE HYDROCHLORIDE 10 MG, 20 MG, 30 MG + 40 MG TABLETS [Suspect]
     Indication: DEPRESSION
     Dates: start: 20090101, end: 20090601
  2. ATORVASTATIN CALCIUM [Concomitant]
  3. VERAPAMIL [Concomitant]
  4. FLECAINIDE ACETATE [Concomitant]
  5. DIGOXIN [Concomitant]
  6. JANUVIA [Concomitant]
  7. PRIMIDONE [Concomitant]

REACTIONS (2)
  - BLOOD GLUCOSE INCREASED [None]
  - RHABDOMYOLYSIS [None]
